FAERS Safety Report 7700462-8 (Version None)
Quarter: 2011Q3

REPORT INFORMATION
  Report Type: 
  Country: None (occurrence: None)
  Receive Date: 20110822
  Receipt Date: 20110812
  Transmission Date: 20111222
  Serious: Yes (Other)
  Sender: FDA-Public Use
  Company Number: JP-JNJFOC-20110603398

PATIENT
  Sex: Female
  Weight: 42 kg

DRUGS (18)
  1. MORPHINE [Suspect]
     Indication: CANCER PAIN
     Dosage: AS NEEDED
     Route: 048
     Dates: start: 20110409
  2. PROCHLORPERAZINE [Suspect]
     Indication: PRODUCT USED FOR UNKNOWN INDICATION
     Route: 048
     Dates: start: 20110408, end: 20110511
  3. FENTANYL CITRATE [Suspect]
     Route: 062
     Dates: start: 20110411, end: 20110425
  4. ETODOLAC [Suspect]
     Indication: CANCER PAIN
     Route: 048
     Dates: start: 20090408, end: 20110524
  5. PURSENNID [Suspect]
     Indication: CONSTIPATION
     Dosage: AS NEEDED
     Route: 048
     Dates: start: 20110411
  6. PRIMPERAN TAB [Suspect]
     Indication: NAUSEA
     Route: 048
     Dates: start: 20110505, end: 20110529
  7. MUCOSTA [Suspect]
     Indication: PROPHYLAXIS
     Route: 048
     Dates: start: 20110408, end: 20110524
  8. LORAZEPAM [Suspect]
     Indication: NAUSEA
     Route: 048
     Dates: start: 20110512, end: 20110524
  9. FENTANYL CITRATE [Suspect]
     Route: 062
     Dates: start: 20110429, end: 20110612
  10. MAGMITT [Suspect]
     Indication: CONSTIPATION
     Route: 048
     Dates: start: 20110408, end: 20110524
  11. HALCION [Suspect]
     Indication: INSOMNIA
     Dosage: AS NEEDED
     Route: 048
     Dates: start: 20110419, end: 20110524
  12. LORAZEPAM [Suspect]
     Indication: VOMITING
     Route: 048
     Dates: start: 20110512, end: 20110524
  13. OXYCONTIN [Suspect]
     Indication: PRODUCT USED FOR UNKNOWN INDICATION
     Route: 048
  14. FENTANYL CITRATE [Suspect]
     Indication: CANCER PAIN
     Route: 062
     Dates: start: 20110613
  15. FENTANYL CITRATE [Suspect]
     Route: 062
     Dates: start: 20110426, end: 20110428
  16. LANSOPRAZOLE [Suspect]
     Indication: PROPHYLAXIS
     Route: 048
     Dates: start: 20110408, end: 20110524
  17. PRIMPERAN TAB [Suspect]
     Indication: VOMITING
     Route: 048
     Dates: start: 20110505, end: 20110529
  18. UNKNOWN MEDICATION [Suspect]
     Indication: PRODUCT USED FOR UNKNOWN INDICATION
     Route: 065

REACTIONS (1)
  - AGRANULOCYTOSIS [None]
